FAERS Safety Report 21159116 (Version 2)
Quarter: 2022Q3

REPORT INFORMATION
  Report Type: Spontaneous
  Country: US (occurrence: US)
  Receive Date: 20220802
  Receipt Date: 20220905
  Transmission Date: 20221026
  Serious: Yes (Other)
  Sender: FDA-Public Use
  Company Number: US-SUN PHARMACEUTICAL INDUSTRIES LTD-2022R1-346891

PATIENT
  Age: 63 Year
  Sex: Male

DRUGS (5)
  1. VALACYCLOVIR [Suspect]
     Active Substance: VALACYCLOVIR HYDROCHLORIDE
     Indication: Necrotising retinitis
     Dosage: 1 GRAM, TID
     Route: 048
  2. VALACYCLOVIR [Suspect]
     Active Substance: VALACYCLOVIR HYDROCHLORIDE
     Indication: Retinitis viral
  3. PREDNISOLONE [Suspect]
     Active Substance: PREDNISOLONE
     Indication: Necrotising retinitis
     Dosage: 60 MILLIGRAM
     Route: 048
  4. PREDNISOLONE [Suspect]
     Active Substance: PREDNISOLONE
     Dosage: TAPERED
     Route: 048
  5. PREDNISOLONE [Concomitant]
     Active Substance: PREDNISOLONE
     Indication: Necrotising retinitis
     Dosage: 1 PERCENT EVERY 2 HOURS
     Route: 061

REACTIONS (1)
  - Retinal detachment [Recovering/Resolving]
